FAERS Safety Report 19995739 (Version 1)
Quarter: 2021Q4

REPORT INFORMATION
  Report Type: Spontaneous
  Country: DE (occurrence: DE)
  Receive Date: 20211026
  Receipt Date: 20211026
  Transmission Date: 20220303
  Serious: Yes (Other)
  Sender: FDA-Public Use
  Company Number: None

PATIENT
  Age: 81 Year
  Sex: Female
  Weight: 60 kg

DRUGS (1)
  1. BROLUCIZUMAB [Suspect]
     Active Substance: BROLUCIZUMAB
     Indication: Neovascular age-related macular degeneration
     Dosage: 6 MG IN 0.05 ML/INJ.
     Route: 065
     Dates: start: 20200504, end: 20201026

REACTIONS (2)
  - Ocular vasculitis [Unknown]
  - Vitreous disorder [Unknown]

NARRATIVE: CASE EVENT DATE: 20210104
